FAERS Safety Report 25868217 (Version 1)
Quarter: 2025Q4

REPORT INFORMATION
  Report Type: Spontaneous
  Country: US (occurrence: US)
  Receive Date: 20251001
  Receipt Date: 20251001
  Transmission Date: 20260117
  Serious: Yes (Death, Hospitalization, Other)
  Sender: ZYDUS PHARM
  Company Number: US-CADILA HEALTHCARE LIMITED-US-ZYDUS-128891

PATIENT

DRUGS (1)
  1. FENTANYL [Suspect]
     Active Substance: FENTANYL
     Indication: Product used for unknown indication
     Dosage: UNK

REACTIONS (3)
  - Toxic leukoencephalopathy [Fatal]
  - Infarction [Fatal]
  - Drug abuse [Unknown]
